FAERS Safety Report 5672936-5 (Version None)
Quarter: 2008Q1

REPORT INFORMATION
  Report Type: 
  Country: None (occurrence: None)
  Receive Date: 20080319
  Receipt Date: 20080311
  Transmission Date: 20080703
  Serious: Yes (Death)
  Sender: FDA-Public Use
  Company Number: A0716235A

PATIENT
  Age: 40 Year
  Sex: Female

DRUGS (3)
  1. PAXIL [Suspect]
     Indication: DEPRESSION
     Route: 065
  2. AMBIEN [Suspect]
     Indication: INSOMNIA
     Route: 048
  3. TOXIC AGENT [Suspect]
     Indication: SUICIDE ATTEMPT

REACTIONS (7)
  - ASPHYXIA [None]
  - CHEMICAL POISONING [None]
  - COMPLETED SUICIDE [None]
  - EMOTIONAL DISTRESS [None]
  - HOMICIDE [None]
  - INCOHERENT [None]
  - SUICIDAL IDEATION [None]
